FAERS Safety Report 25409693 (Version 1)
Quarter: 2025Q2

REPORT INFORMATION
  Report Type: Spontaneous
  Country: US (occurrence: US)
  Receive Date: 20250607
  Receipt Date: 20250607
  Transmission Date: 20250717
  Serious: No
  Sender: RIGEL PHARMACEUTICALS
  Company Number: US-RIGEL PHARMACEUTICALS, INC.-20250300059

PATIENT
  Sex: Female

DRUGS (1)
  1. TAVALISSE [Suspect]
     Active Substance: FOSTAMATINIB
     Indication: Immune thrombocytopenia
     Dosage: 100 MG, BID
     Route: 048
     Dates: end: 20250220

REACTIONS (7)
  - Dry throat [Unknown]
  - Cough [Unknown]
  - Dysgeusia [Unknown]
  - Secretion discharge [Unknown]
  - Ageusia [Unknown]
  - Excessive cerumen production [Unknown]
  - Middle ear effusion [Unknown]
